FAERS Safety Report 7273929-7 (Version None)
Quarter: 2011Q1

REPORT INFORMATION
  Report Type: 
  Country: None (occurrence: None)
  Receive Date: 20110203
  Receipt Date: 20110127
  Transmission Date: 20110831
  Serious: Yes (Hospitalization, Other)
  Sender: FDA-Public Use
  Company Number: US-US-EMD SERONO, INC.-7004745

PATIENT
  Sex: Female

DRUGS (12)
  1. KEPPRA [Concomitant]
     Indication: CONVULSION
     Dates: start: 20100201
  2. REBIF [Suspect]
     Indication: MULTIPLE SCLEROSIS
     Route: 058
     Dates: start: 20100326, end: 20100101
  3. CELEXA [Concomitant]
     Indication: DEPRESSION
     Dates: start: 20100301, end: 20100501
  4. VITAMIN D [Concomitant]
     Indication: SWELLING
  5. OSCAL [Concomitant]
     Indication: SWELLING
  6. POTASSIUM [Concomitant]
     Indication: SWELLING
  7. FLONASE [Concomitant]
     Indication: SEASONAL ALLERGY
  8. REBIF [Suspect]
     Route: 058
     Dates: start: 20100512, end: 20100820
  9. FISH OIL [Concomitant]
     Indication: SWELLING
  10. REBIF [Suspect]
     Route: 058
     Dates: start: 20100101, end: 20100101
  11. CELEXA [Concomitant]
     Dates: start: 20100501
  12. LASIX [Concomitant]
     Indication: SWELLING

REACTIONS (4)
  - CENTRAL NERVOUS SYSTEM LYMPHOMA [None]
  - SINUSITIS [None]
  - DEPRESSION [None]
  - OPTIC NERVE DISORDER [None]
